FAERS Safety Report 16934287 (Version 2)
Quarter: 2020Q1

REPORT INFORMATION
  Report Type: Report from Study
  Country: US (occurrence: US)
  Receive Date: 20191018
  Receipt Date: 20200110
  Transmission Date: 20200409
  Serious: Yes (Hospitalization, Other)
  Sender: FDA-Public Use
  Company Number: US-TEVA-2019-US-1124525

PATIENT
  Sex: Male

DRUGS (5)
  1. AUSTEDO [Suspect]
     Active Substance: DEUTETRABENAZINE
     Dosage: STARTED AUSTEDO
     Route: 048
     Dates: start: 20191009
  2. AUSTEDO [Suspect]
     Active Substance: DEUTETRABENAZINE
     Dosage: TAKING 6 MG
     Route: 048
  3. AUSTEDO [Suspect]
     Active Substance: DEUTETRABENAZINE
     Dosage: TAKING 12 MG
     Route: 048
  4. ABILIFY [Concomitant]
     Active Substance: ARIPIPRAZOLE
  5. AUSTEDO [Suspect]
     Active Substance: DEUTETRABENAZINE
     Route: 048
     Dates: end: 2019

REACTIONS (9)
  - Diabetes mellitus [Unknown]
  - Sleep deficit [Unknown]
  - Feeling abnormal [Not Recovered/Not Resolved]
  - Crying [Unknown]
  - Depression [Unknown]
  - Suicidal ideation [Unknown]
  - Nephropathy [Unknown]
  - Drug ineffective [Unknown]
  - Feeling abnormal [Unknown]

NARRATIVE: CASE EVENT DATE: 2019
